FAERS Safety Report 19925682 (Version 3)
Quarter: 2024Q1

REPORT INFORMATION
  Report Type: Other
  Country: GB (occurrence: None)
  Receive Date: 20211007
  Receipt Date: 20240223
  Transmission Date: 20240409
  Serious: Yes (Hospitalization)
  Sender: FDA-Public Use
  Company Number: GB-ROCHE-2925504

PATIENT
  Age: 52 Year
  Sex: Female

DRUGS (15)
  1. OCRELIZUMAB [Suspect]
     Active Substance: OCRELIZUMAB
     Indication: Primary progressive multiple sclerosis
     Dosage: SUBSEQUENT SAME DOSE: 04/JUL/2019 (LOT NUMBER: UNKNOWN)
     Route: 042
     Dates: start: 20190620
  2. OCRELIZUMAB [Suspect]
     Active Substance: OCRELIZUMAB
     Dosage: ON 21/JAN/2021, SHE RECEIVED MOST RECENT DOSE (600 MG) OF STUDY DRUG PRIOR TO AE.?SUBSEQUENT SAME DO
     Route: 042
     Dates: start: 20191219
  3. OCRELIZUMAB [Suspect]
     Active Substance: OCRELIZUMAB
     Dosage: ON 21/JAN/2021, SHE RECEIVED MOST RECENT DOSE (600 MG) OF STUDY DRUG PRIOR TO AE.?SUBSEQUENT SAME DO
     Route: 042
     Dates: start: 20200723
  4. OCRELIZUMAB [Suspect]
     Active Substance: OCRELIZUMAB
     Dosage: ON 21/JAN/2021, SHE RECEIVED MOST RECENT DOSE (600 MG) OF STUDY DRUG PRIOR TO AE.?SUBSEQUENT SAME DO
     Route: 042
     Dates: start: 20210121
  5. INSULIN NOS [Concomitant]
     Active Substance: INSULIN NOS
     Route: 058
  6. AMITRIPTYLINE [Concomitant]
     Active Substance: AMITRIPTYLINE
     Route: 048
  7. ATORVASTATIN [Concomitant]
     Active Substance: ATORVASTATIN
     Route: 048
  8. BACLOFEN [Concomitant]
     Active Substance: BACLOFEN
     Route: 048
  9. EMPAGLIFLOZIN [Concomitant]
     Active Substance: EMPAGLIFLOZIN
     Route: 048
  10. FERROUS FUMARATE [Concomitant]
     Active Substance: FERROUS FUMARATE
     Route: 048
  11. GABAPENTIN [Concomitant]
     Active Substance: GABAPENTIN
     Route: 048
  12. LABETALOL [Concomitant]
     Active Substance: LABETALOL\LABETALOL HYDROCHLORIDE
     Route: 048
  13. METFORMIN [Concomitant]
     Active Substance: METFORMIN HYDROCHLORIDE
     Route: 048
  14. OMEPRAZOLE [Concomitant]
     Active Substance: OMEPRAZOLE
     Indication: Prophylaxis
     Route: 048
  15. LOSARTAN [Concomitant]
     Active Substance: LOSARTAN
     Route: 048
     Dates: start: 2021

REACTIONS (1)
  - COVID-19 [Recovered/Resolved]

NARRATIVE: CASE EVENT DATE: 20210701
